FAERS Safety Report 6164305-9 (Version None)
Quarter: 2009Q2

REPORT INFORMATION
  Report Type: 
  Country: None (occurrence: None)
  Receive Date: 20090422
  Receipt Date: 20090410
  Transmission Date: 20091009
  Serious: Yes (Other)
  Sender: FDA-Public Use
  Company Number: US-PFIZER INC-2009199803

PATIENT
  Age: 51 Year
  Sex: Male

DRUGS (1)
  1. CHANTIX [Suspect]
     Indication: SMOKING CESSATION THERAPY
     Dosage: 0.5 MG, UNK
     Dates: start: 20090101, end: 20090408

REACTIONS (3)
  - HYPOAESTHESIA FACIAL [None]
  - PARAESTHESIA [None]
  - SWELLING FACE [None]
